FAERS Safety Report 7933544-6 (Version None)
Quarter: 2011Q4

REPORT INFORMATION
  Report Type: 
  Country: None (occurrence: None)
  Receive Date: 20111122
  Receipt Date: 20111108
  Transmission Date: 20120403
  Serious: No
  Sender: FDA-Public Use
  Company Number: US-B.I. PHARMACEUTICALS,INC./RIDGEFIELD-2011-BP-25858BP

PATIENT
  Sex: Female

DRUGS (5)
  1. JANUMET [Concomitant]
     Indication: DIABETES MELLITUS
     Dates: start: 20110101
  2. PRADAXA [Suspect]
     Indication: ANTICOAGULANT THERAPY
     Dosage: 150 MG
     Route: 048
     Dates: start: 20110101
  3. BISOPROLOL FUMARATE [Concomitant]
     Indication: HYPERTENSION
  4. SIMVASTATIN [Concomitant]
     Indication: BLOOD CHOLESTEROL INCREASED
  5. ACTONEL [Concomitant]
     Indication: PROPHYLAXIS
     Dates: start: 19980101

REACTIONS (4)
  - ERUCTATION [None]
  - FLATULENCE [None]
  - DYSPEPSIA [None]
  - ARTHRALGIA [None]
